FAERS Safety Report 22640805 (Version 2)
Quarter: 2024Q2

REPORT INFORMATION
  Report Type: Report from Study
  Country: DE (occurrence: DE)
  Receive Date: 20230626
  Receipt Date: 20240419
  Transmission Date: 20240716
  Serious: Yes (Congenital Anomaly, Other)
  Sender: FDA-Public Use
  Company Number: DE-MYLANLABS-2023M1065236

PATIENT
  Sex: Female

DRUGS (1)
  1. GLATIRAMER [Suspect]
     Active Substance: GLATIRAMER
     Indication: Multiple sclerosis
     Dosage: 40 MILLION PER MILLILITRE, 3XW
     Route: 058
     Dates: start: 20221114

REACTIONS (3)
  - Respiratory distress [Recovered/Resolved]
  - Limb discomfort [Recovered/Resolved]
  - Injection site erythema [Recovered/Resolved]

NARRATIVE: CASE EVENT DATE: 20230617
